FAERS Safety Report 8341876 (Version 3)
Quarter: 2013Q2

REPORT INFORMATION
  Report Type: Spontaneous
  Country: US (occurrence: US)
  Receive Date: 20120118
  Receipt Date: 20130520
  Transmission Date: 20140414
  Serious: Yes (Other)
  Sender: FDA-Public Use
  Company Number: US-ROCHE-1031104

PATIENT
  Sex: Male
  Weight: 77.18 kg

DRUGS (2)
  1. ACCUTANE [Suspect]
     Indication: ACNE CYSTIC
     Route: 048
     Dates: start: 200008, end: 200012
  2. ACCUTANE [Suspect]
     Route: 048
     Dates: start: 200006, end: 200101

REACTIONS (7)
  - Colitis ulcerative [Unknown]
  - Inflammatory bowel disease [Unknown]
  - Coeliac disease [Unknown]
  - Injury [Unknown]
  - Proctitis [Unknown]
  - Depression [Unknown]
  - Irritable bowel syndrome [Unknown]
